FAERS Safety Report 6517535-8 (Version None)
Quarter: 2009Q4

REPORT INFORMATION
  Report Type: 
  Country: None (occurrence: None)
  Receive Date: 20091224
  Receipt Date: 20091214
  Transmission Date: 20100525
  Serious: Yes (Hospitalization)
  Sender: FDA-Public Use
  Company Number: BR-ROCHE-658574

PATIENT
  Sex: Female

DRUGS (4)
  1. ROACUTAN [Suspect]
     Indication: ACNE CONGLOBATA
     Route: 048
     Dates: start: 20061001, end: 20080901
  2. ROACUTAN [Suspect]
     Route: 048
     Dates: start: 20090101, end: 20090101
  3. ROACUTAN [Suspect]
     Route: 048
  4. DIANE 35 [Concomitant]
     Indication: CONTRACEPTION
     Route: 048
     Dates: start: 20060101

REACTIONS (1)
  - PNEUMONIA [None]
